FAERS Safety Report 4716690-X (Version None)
Quarter: 2005Q3

REPORT INFORMATION
  Report Type: 
  Country: None (occurrence: None)
  Receive Date: 20050714
  Receipt Date: 20050702
  Transmission Date: 20060218
  Serious: Yes (Other)
  Sender: FDA-Public Use
  Company Number: 2005060406

PATIENT
  Age: 31 Year
  Sex: Male

DRUGS (1)
  1. GEODON [Suspect]
     Indication: BIPOLAR DISORDER
     Dosage: 1600 MG (80 MG, 2 IN 1 D), ORAL
     Route: 048
     Dates: start: 20050326

REACTIONS (6)
  - DYSPHAGIA [None]
  - MUSCLE SPASMS [None]
  - OROPHARYNGEAL SPASM [None]
  - RESPIRATORY DISTRESS [None]
  - THROAT TIGHTNESS [None]
  - TONGUE DISORDER [None]
